FAERS Safety Report 18080864 (Version 2)
Quarter: 2020Q3

REPORT INFORMATION
  Report Type: Spontaneous
  Country: US (occurrence: US)
  Receive Date: 20200728
  Receipt Date: 20200907
  Transmission Date: 20201103
  Serious: Yes (Hospitalization, Other)
  Sender: FDA-Public Use
  Company Number: US-BRISTOL-MYERS SQUIBB COMPANY-BMS-2020-059636

PATIENT
  Sex: Male
  Weight: 97.97 kg

DRUGS (1)
  1. ELIQUIS [Suspect]
     Active Substance: APIXABAN
     Indication: CEREBROVASCULAR ACCIDENT PROPHYLAXIS
     Dosage: 10 MG
     Route: 065

REACTIONS (4)
  - Cerebrovascular accident [Unknown]
  - Muscle spasms [Unknown]
  - Diabetic neuropathy [Unknown]
  - Vomiting projectile [Unknown]
